FAERS Safety Report 7564739-1 (Version None)
Quarter: 2011Q2

REPORT INFORMATION
  Report Type: 
  Country: None (occurrence: None)
  Receive Date: 20110622
  Receipt Date: 20101102
  Transmission Date: 20111010
  Serious: Yes (Other)
  Sender: FDA-Public Use
  Company Number: US-MYLANLABS-2010S1018662

PATIENT
  Age: 39 Year
  Sex: Female

DRUGS (8)
  1. CLOZAPINE [Suspect]
     Indication: PSYCHOTIC DISORDER
     Route: 048
     Dates: end: 20101005
  2. TRICOR [Concomitant]
  3. ACTOS [Concomitant]
  4. FLUVOXAMINE MALEATE [Concomitant]
  5. DIVALPROEX SODIUM [Concomitant]
  6. LORATADINE [Concomitant]
  7. PROPRANOLOL [Concomitant]
  8. GLIPIZIDE [Concomitant]

REACTIONS (1)
  - GRANULOCYTOPENIA [None]
